FAERS Safety Report 4821354-8 (Version None)
Quarter: 2005Q4

REPORT INFORMATION
  Report Type: 
  Country: None (occurrence: None)
  Receive Date: 20051107
  Receipt Date: 20050929
  Transmission Date: 20060501
  Serious: No
  Sender: FDA-Public Use
  Company Number: 419666

PATIENT
  Age: 66 Year
  Sex: Male

DRUGS (6)
  1. AVANDAMET [Suspect]
     Dosage: 1TAB PER DAY
     Route: 048
     Dates: start: 20030101
  2. COREG [Suspect]
     Indication: DRUG USE FOR UNKNOWN INDICATION
     Route: 048
  3. TOPROL-XL [Concomitant]
  4. MICARDIS [Concomitant]
  5. IBUPROFEN [Concomitant]
  6. TYLENOL (CAPLET) [Concomitant]

REACTIONS (2)
  - DYSGEUSIA [None]
  - PHARMACEUTICAL PRODUCT COMPLAINT [None]
